FAERS Safety Report 16844194 (Version 1)
Quarter: 2019Q3

REPORT INFORMATION
  Report Type: Spontaneous
  Country: US (occurrence: US)
  Receive Date: 20190802
  Receipt Date: 20190802
  Transmission Date: 20191005
  Serious: Yes (Death)
  Sender: FDA-Public Use
  Company Number: None

PATIENT
  Age: 64 Year
  Sex: Male
  Weight: 86 kg

DRUGS (1)
  1. SUNITINIB 50MG [Suspect]
     Active Substance: SUNITINIB
     Indication: THYMIC CANCER METASTATIC
     Route: 048
     Dates: start: 20190214, end: 20190605

REACTIONS (6)
  - Hepatitis acute [None]
  - Cholecystitis acute [None]
  - Multiple organ dysfunction syndrome [None]
  - Cholecystitis [None]
  - Acute hepatic failure [None]
  - Cardiomyopathy [None]

NARRATIVE: CASE EVENT DATE: 20190607
